FAERS Safety Report 14485044 (Version 1)
Quarter: 2018Q1

REPORT INFORMATION
  Report Type: Spontaneous
  Country: US (occurrence: US)
  Receive Date: 20180205
  Receipt Date: 20180205
  Transmission Date: 20180509
  Serious: No
  Sender: FDA-Public Use
  Company Number: US-PFIZER INC-2018045326

PATIENT
  Age: 17 Year
  Sex: Male
  Weight: 40.37 kg

DRUGS (2)
  1. CORTISOL [Concomitant]
     Active Substance: HYDROCORTISONE
     Indication: MALAISE
     Dosage: 10 MG, AS NEEDED
  2. GENOTROPIN MQ [Suspect]
     Active Substance: SOMATROPIN
     Dosage: 4.4 MG, 1X/DAY (4.4MG INJECTION ONCE DAILY)
     Dates: end: 20180120

REACTIONS (1)
  - Influenza [Recovering/Resolving]

NARRATIVE: CASE EVENT DATE: 20180122
